FAERS Safety Report 6952770-6 (Version None)
Quarter: 2010Q3

REPORT INFORMATION
  Report Type: 
  Country: None (occurrence: None)
  Receive Date: 20100829
  Receipt Date: 20100720
  Transmission Date: 20110219
  Serious: No
  Sender: FDA-Public Use
  Company Number: US-ABBOTT-10P-163-0645534-00

PATIENT

DRUGS (4)
  1. NIASPAN [Suspect]
     Indication: PRODUCT USED FOR UNKNOWN INDICATION
  2. TRILIPIX [Suspect]
     Indication: PRODUCT USED FOR UNKNOWN INDICATION
  3. COUMADIN [Suspect]
     Indication: PRODUCT USED FOR UNKNOWN INDICATION
  4. LONG LIST [Concomitant]
     Indication: PRODUCT USED FOR UNKNOWN INDICATION

REACTIONS (1)
  - PROTHROMBIN TIME PROLONGED [None]
